FAERS Safety Report 15613869 (Version 1)
Quarter: 2018Q4

REPORT INFORMATION
  Report Type: Spontaneous
  Country: FR (occurrence: FR)
  Receive Date: 20181113
  Receipt Date: 20181113
  Transmission Date: 20190205
  Serious: Yes (Other)
  Sender: FDA-Public Use
  Company Number: FR-MYLANLABS-2018M1085672

PATIENT
  Age: 53 Year
  Sex: Female

DRUGS (5)
  1. VOLTARENE                          /00372303/ [Suspect]
     Active Substance: DICLOFENAC DIETHYLAMINE
     Indication: PAIN
     Dosage: 1 DF, QD
     Route: 048
     Dates: start: 2007
  2. NUREFLEX [Suspect]
     Active Substance: IBUPROFEN
     Indication: HEADACHE
     Dosage: 2 DF, QW
     Route: 048
     Dates: start: 2007
  3. VALSARTAN/HYDROCHLOROTHIAZIDE MYLAN 160 MG/12,5 MG, COMPRIM? PELLICUL? [Suspect]
     Active Substance: HYDROCHLOROTHIAZIDE\VALSARTAN
     Indication: HYPERTENSION
     Dosage: 1 DF, QD
     Route: 048
     Dates: start: 201705
  4. FLECTOR                            /00372302/ [Suspect]
     Active Substance: DICLOFENAC SODIUM
     Indication: PAIN IN EXTREMITY
     Dosage: 2 DF, QW
     Route: 061
     Dates: start: 2007
  5. SERC (BETAHISTINE HYDROCHLORIDE) [Suspect]
     Active Substance: BETAHISTINE HYDROCHLORIDE
     Indication: VERTIGO
     Dosage: 1 DF, QD
     Route: 048
     Dates: start: 2007, end: 201802

REACTIONS (1)
  - Granuloma annulare [Not Recovered/Not Resolved]

NARRATIVE: CASE EVENT DATE: 201708
